FAERS Safety Report 6387089-8 (Version None)
Quarter: 2009Q4

REPORT INFORMATION
  Report Type: 
  Country: None (occurrence: None)
  Receive Date: 20091002
  Receipt Date: 20090921
  Transmission Date: 20100525
  Serious: Yes (Other)
  Sender: FDA-Public Use
  Company Number: US-ROCHE-657836

PATIENT
  Sex: Female

DRUGS (4)
  1. PEG-INTERFERON A-2A (RO 25-8310) [Suspect]
     Indication: HEPATITIS C
     Route: 065
     Dates: start: 20040101
  2. PEG-INTERFERON A-2A (RO 25-8310) [Suspect]
     Dosage: TEMPORARILY DISCONTINUED
     Route: 065
     Dates: start: 20090910
  3. RIBAVIRIN (NON-ROCHE) [Suspect]
     Indication: HEPATITIS C
     Route: 048
     Dates: start: 20040101
  4. RIBAVIRIN (NON-ROCHE) [Suspect]
     Dosage: TEMPORARILY DISCONTINUED
     Route: 048
     Dates: start: 20090910

REACTIONS (6)
  - CONTUSION [None]
  - FATIGUE [None]
  - HEPATIC CIRRHOSIS [None]
  - MEMORY IMPAIRMENT [None]
  - PLATELET AGGREGATION INCREASED [None]
  - VIRAL INFECTION [None]
